FAERS Safety Report 5330697-3 (Version None)
Quarter: 2007Q2

REPORT INFORMATION
  Report Type: 
  Country: None (occurrence: None)
  Receive Date: 20070522
  Receipt Date: 20070516
  Transmission Date: 20071010
  Serious: Yes (Other)
  Sender: FDA-Public Use
  Company Number: PHEH2007US07518

PATIENT
  Sex: Male
  Weight: 79.365 kg

DRUGS (3)
  1. AREDIA [Suspect]
     Indication: METASTASES TO BONE
     Dosage: 90MG MONTHLY
     Dates: start: 20031101, end: 20051101
  2. ZOMETA [Suspect]
     Indication: METASTASES TO BONE
     Dosage: 4MG MONTHLY
     Route: 042
     Dates: start: 20051201, end: 20060301
  3. DEXAMETHASONE 0.5MG TAB [Concomitant]

REACTIONS (1)
  - OSTEONECROSIS [None]
